FAERS Safety Report 8816279 (Version 1)
Quarter: 2012Q4

REPORT INFORMATION
  Report Type: Spontaneous
  Country: US (occurrence: None)
  Receive Date: 20120928
  Receipt Date: 20120928
  Transmission Date: 20130627
  Serious: Yes (Death)
  Sender: FDA-Public Use
  Company Number: None

PATIENT
  Sex: Female
  Weight: 56.25 kg

DRUGS (3)
  1. YERVOY [Suspect]
     Indication: MALIGNANT MELANOMA STAGE IV
     Dosage: U of M Hospital has info
     Dates: start: 20120313
  2. YERVOY [Suspect]
     Indication: MALIGNANT MELANOMA STAGE IV
     Dates: start: 20120403
  3. YERVOY [Suspect]
     Indication: MALIGNANT MELANOMA STAGE IV
     Dates: start: 20120424

REACTIONS (9)
  - Diarrhoea [None]
  - Decreased appetite [None]
  - Fatigue [None]
  - Neuropathy peripheral [None]
  - Female genital tract fistula [None]
  - Dysphagia [None]
  - Aphasia [None]
  - Weight decreased [None]
  - Asthenia [None]
